FAERS Safety Report 8538782-X (Version None)
Quarter: 2012Q2

REPORT INFORMATION
  Report Type: 
  Country: None (occurrence: None)
  Receive Date: 20120416
  Receipt Date: 20091028
  Transmission Date: 20120825
  Serious: Yes (Hospitalization, Other)
  Sender: FDA-Public Use
  Company Number: PHEH2009US14683

PATIENT
  Sex: Female

DRUGS (4)
  1. DIOVAN [Suspect]
     Dosage: 80 MG
     Dates: end: 20090501
  2. SYNTHROID [Concomitant]
  3. MINOXIDIL [Suspect]
  4. FUROSEMIDE [Concomitant]

REACTIONS (3)
  - HYPOTENSION [None]
  - BLOOD PRESSURE FLUCTUATION [None]
  - OEDEMA PERIPHERAL [None]
